FAERS Safety Report 5207507-8 (Version None)
Quarter: 2007Q1

REPORT INFORMATION
  Report Type: 
  Country: None (occurrence: None)
  Receive Date: 20070112
  Receipt Date: 20070109
  Transmission Date: 20070707
  Serious: Yes (Hospitalization)
  Sender: FDA-Public Use
  Company Number: US-ROXANE LABORATORIES, INC-2007-DE-00170GD

PATIENT
  Age: 61 Year
  Sex: Male

DRUGS (5)
  1. HYDROCHLOROTHIAZIDE [Suspect]
     Indication: HYPERTENSION
  2. NADOLOL [Suspect]
     Indication: HYPERTENSION
  3. DILTIAZEM HCL [Suspect]
     Indication: HYPERTENSION
  4. IRBESARTAN [Suspect]
     Indication: HYPERTENSION
  5. OTHER DRUGS [Concomitant]

REACTIONS (5)
  - BLOOD PRESSURE DECREASED [None]
  - DISORIENTATION [None]
  - LETHARGY [None]
  - NODAL RHYTHM [None]
  - SINUS ARREST [None]
